FAERS Safety Report 5646594-X (Version None)
Quarter: 2008Q1

REPORT INFORMATION
  Report Type: 
  Country: None (occurrence: None)
  Receive Date: 20080228
  Receipt Date: 20080222
  Transmission Date: 20080703
  Serious: Yes (Other)
  Sender: FDA-Public Use
  Company Number: 2008004612

PATIENT
  Sex: Female

DRUGS (1)
  1. NICORETTE [Suspect]
     Dosage: 15 MG TRANSDERMAL
     Route: 062

REACTIONS (2)
  - APPLICATION SITE IRRITATION [None]
  - BURNING SENSATION [None]
